FAERS Safety Report 18240392 (Version 1)
Quarter: 2020Q3

REPORT INFORMATION
  Report Type: Report from Study
  Country: AU (occurrence: AU)
  Receive Date: 20200908
  Receipt Date: 20200908
  Transmission Date: 20201103
  Serious: Yes (Hospitalization)
  Sender: FDA-Public Use
  Company Number: AU-BEIGENE-2018-000181

PATIENT

DRUGS (7)
  1. COENZYME Q10 [Concomitant]
     Active Substance: DIETARY SUPPLEMENT\UBIDECARENONE
     Indication: SUPPLEMENTATION THERAPY
     Dosage: 1 TAB, QD
     Route: 048
     Dates: start: 2008
  2. BGB?3111 [Suspect]
     Active Substance: ZANUBRUTINIB
     Indication: CHRONIC LYMPHOCYTIC LEUKAEMIA
     Dosage: 320 MG, QD
     Route: 048
     Dates: start: 20160406
  3. OBINUTUZUMAB. [Suspect]
     Active Substance: OBINUTUZUMAB
     Indication: CHRONIC LYMPHOCYTIC LEUKAEMIA
     Dosage: 1000 MG, ONE TIME DOSE
     Route: 042
     Dates: start: 20160406
  4. CALCIUM + VITAMIN D                /09279801/ [Concomitant]
     Active Substance: CALCIUM\CHOLECALCIFEROL
     Indication: BONE DISORDER
     Dosage: 1 TAB, QD
     Route: 048
     Dates: start: 2006
  5. BROMHEXINE HYDROCHLORIDE W/GUAIFENESIN [Concomitant]
     Indication: PNEUMONIA
     Dosage: 10 MILLILITER, PRN
     Route: 048
     Dates: start: 20180227
  6. BROMHEXINE HYDROCHLORIDE W/GUAIFENESIN [Concomitant]
     Indication: PNEUMONIA HAEMOPHILUS
  7. RAMIPRIL. [Concomitant]
     Active Substance: RAMIPRIL
     Indication: CARDIOMYOPATHY
     Dosage: 5 MILLIGRAM, QD
     Route: 048
     Dates: start: 2005

REACTIONS (1)
  - Pneumonia haemophilus [Recovered/Resolved]

NARRATIVE: CASE EVENT DATE: 20180315
